FAERS Safety Report 17639527 (Version 3)
Quarter: 2020Q2

REPORT INFORMATION
  Report Type: Spontaneous
  Country: JP (occurrence: JP)
  Receive Date: 20200407
  Receipt Date: 20200527
  Transmission Date: 20200713
  Serious: Yes (Life-Threatening, Hospitalization, Disabling, Other)
  Sender: FDA-Public Use
  Company Number: JP-ASTRAZENECA-2019SF68696

PATIENT
  Age: 74 Year
  Sex: Male
  Weight: 55 kg

DRUGS (14)
  1. CANAGLU [Concomitant]
     Active Substance: CANAGLIFLOZIN
     Indication: TYPE 2 DIABETES MELLITUS
     Dosage: DOSE UNKNOWN
     Route: 065
  2. CILNIDIPINE [Concomitant]
     Active Substance: CILNIDIPINE
     Indication: HYPERTENSION
     Dosage: IMMEDIATELY AFTER BREAKFAST
     Route: 048
     Dates: start: 20191001
  3. KALISERUM NA [Concomitant]
     Indication: HYPERKALAEMIA
     Route: 048
     Dates: start: 20191001, end: 20191012
  4. CRESTOR OD [Concomitant]
     Active Substance: ROSUVASTATIN CALCIUM
     Indication: DYSLIPIDAEMIA
     Dosage: IMMEDIATELY AFTER BREAKFAST
     Route: 048
     Dates: end: 201910
  5. ARTIST [Concomitant]
     Active Substance: CARVEDILOL
     Dosage: IMMEDIATELY AFTER BREAKFAST AND EVENING MEAL
     Route: 048
     Dates: start: 20191001
  6. ASPIRIN. [Concomitant]
     Active Substance: ASPIRIN
     Indication: CEREBRAL INFARCTION
     Dosage: IMMEDIATELY AFTER BREAKFAST
     Route: 048
  7. NEXIUM [Suspect]
     Active Substance: ESOMEPRAZOLE MAGNESIUM
     Indication: PROPHYLAXIS AGAINST GASTROINTESTINAL ULCER
     Route: 048
     Dates: start: 201812, end: 20191021
  8. NOVOLIN 30R [Suspect]
     Active Substance: INSULIN HUMAN
     Indication: TYPE 2 DIABETES MELLITUS
     Dosage: 10 UNITS BEFORE BREAKFAST, 6 UNITS BEFORE EVENING MEAL
     Route: 058
     Dates: start: 20191001, end: 20191021
  9. TRAZENTA [Concomitant]
     Active Substance: LINAGLIPTIN
     Indication: TYPE 2 DIABETES MELLITUS
     Dosage: IMMEDIATELY AFTER BREAKFAST
     Route: 048
  10. SODIUM POLYSTYRENE SULFONATE. [Suspect]
     Active Substance: SODIUM POLYSTYRENE SULFONATE
     Dosage: DOSE UNKNOWN
     Route: 065
  11. TAMSULOSIN HYDROCHLORIDE. [Concomitant]
     Active Substance: TAMSULOSIN HYDROCHLORIDE
     Indication: BENIGN PROSTATIC HYPERPLASIA
     Dosage: IMMEDIATELY AFTER BREAKFAST
     Route: 048
  12. CLOPIDOGREL [Concomitant]
     Active Substance: CLOPIDOGREL BISULFATE
     Indication: CEREBRAL INFARCTION
     Dosage: IMMEDIATELY AFTER BREAKFAST
     Route: 048
  13. FEBURIC [Concomitant]
     Active Substance: FEBUXOSTAT
     Dosage: IMMEDIATELY AFTER BREAKFAST
     Route: 048
  14. GLUFAST [Concomitant]
     Active Substance: MITIGLINIDE
     Indication: TYPE 2 DIABETES MELLITUS
     Dosage: DOSE UNKNOWN
     Route: 065

REACTIONS (6)
  - Hypokalaemia [Recovered/Resolved]
  - End stage renal disease [Not Recovered/Not Resolved]
  - Blood creatine phosphokinase increased [Recovered/Resolved]
  - Hypocalcaemia [Recovered/Resolved]
  - Hypoglycaemia [Recovering/Resolving]
  - Hypomagnesaemia [Recovered/Resolved]

NARRATIVE: CASE EVENT DATE: 20190926
